FAERS Safety Report 4312508-8 (Version None)
Quarter: 2004Q1

REPORT INFORMATION
  Report Type: 
  Country: None (occurrence: None)
  Receive Date: 20040303
  Receipt Date: 20040223
  Transmission Date: 20041129
  Serious: Yes (Death)
  Sender: FDA-Public Use
  Company Number: 2004EU000401

PATIENT
  Age: 35 Year
  Sex: Female

DRUGS (1)
  1. FK506 (TACROLIMUS) FORMULATION UNKNOWN [Suspect]
     Dosage: UNK, UNKNOWN/D, UNK

REACTIONS (9)
  - ABDOMINAL PAIN LOWER [None]
  - ANOREXIA [None]
  - HEPATOMEGALY [None]
  - MALAISE [None]
  - METASTATIC MALIGNANT MELANOMA [None]
  - NAUSEA [None]
  - NIGHT SWEATS [None]
  - PYREXIA [None]
  - WEIGHT DECREASED [None]
